FAERS Safety Report 5693525-2 (Version None)
Quarter: 2008Q2

REPORT INFORMATION
  Report Type: 
  Country: None (occurrence: None)
  Receive Date: 20080403
  Receipt Date: 20080327
  Transmission Date: 20081010
  Serious: Yes (Disabling)
  Sender: FDA-Public Use
  Company Number: BR-ABBOTT-08P-020-0444285-00

PATIENT
  Age: 14 Year
  Sex: Male

DRUGS (4)
  1. VALPROATE SODIUM [Suspect]
     Indication: MYOCLONIC EPILEPSY
     Route: 065
  2. LAMOTRIGINE [Suspect]
     Indication: MYOCLONIC EPILEPSY
     Route: 065
  3. LAMOTRIGINE [Suspect]
     Route: 065
  4. CLONAZEPAM [Concomitant]
     Indication: MYOCLONIC EPILEPSY
     Route: 065

REACTIONS (4)
  - ATAXIA [None]
  - GAIT DISTURBANCE [None]
  - SPEECH DISORDER [None]
  - TREMOR [None]
